FAERS Safety Report 10213336 (Version 1)
Quarter: 2014Q2

REPORT INFORMATION
  Report Type: Spontaneous
  Country: CH (occurrence: None)
  Receive Date: 20140529
  Receipt Date: 20140529
  Transmission Date: 20141212
  Serious: Yes (Other)
  Sender: FDA-Public Use
  Company Number: SYM-2014-21370

PATIENT
  Sex: 0

DRUGS (3)
  1. FLUOROURACIL (FLUOROURACIL) [Suspect]
     Indication: BREAST CANCER
  2. CYCLOPHOSPHAMIDE (CYCLOPHOSPHAMIDE) [Suspect]
     Indication: BREAST CANCER
  3. EPIRUBICIN [Suspect]
     Indication: BREAST CANCER

REACTIONS (2)
  - Toxicity to various agents [None]
  - Neutropenia [None]
